FAERS Safety Report 24385896 (Version 1)
Quarter: 2024Q4

REPORT INFORMATION
  Report Type: Spontaneous
  Country: US (occurrence: US)
  Receive Date: 20241001
  Receipt Date: 20241001
  Transmission Date: 20250115
  Serious: No
  Sender: ALKERMES
  Company Number: US-ALKERMES INC.-ALK-2024-002125

PATIENT
  Sex: Male
  Weight: 93.061 kg

DRUGS (1)
  1. VIVITROL [Suspect]
     Active Substance: NALTREXONE
     Indication: Product used for unknown indication
     Dosage: 380 MILLIGRAM, QMO
     Route: 030

REACTIONS (5)
  - Lack of administration site rotation [Recovered/Resolved]
  - Therapeutic response decreased [Unknown]
  - Injection site mass [Recovering/Resolving]
  - Injection site pruritus [Unknown]
  - Injection site induration [Unknown]
